FAERS Safety Report 6929975-3 (Version None)
Quarter: 2010Q3

REPORT INFORMATION
  Report Type: 
  Country: None (occurrence: None)
  Receive Date: 20100818
  Receipt Date: 20100811
  Transmission Date: 20110219
  Serious: Yes (Hospitalization)
  Sender: FDA-Public Use
  Company Number: AU-AMGEN-KDL424174

PATIENT
  Age: 68 Year
  Sex: Male

DRUGS (13)
  1. NEUPOGEN [Suspect]
     Indication: BLOOD STEM CELL HARVEST
  2. CYCLOPHOSPHAMIDE [Concomitant]
     Dates: start: 20100429
  3. DOXORUBICIN HYDROCHLORIDE [Concomitant]
     Dates: start: 20100429
  4. VINCRISTINE [Concomitant]
     Dates: start: 20100429
  5. PREDNISONE [Concomitant]
     Dates: start: 20100429
  6. ALLOPURINOL [Concomitant]
  7. BACTRIM [Concomitant]
  8. VALACYCLOVIR [Concomitant]
  9. FLUCONAZOLE [Concomitant]
  10. OXYCONTIN [Concomitant]
  11. SENNA [Concomitant]
  12. NULYTELY [Concomitant]
  13. COLOXYL [Concomitant]

REACTIONS (3)
  - BACK PAIN [None]
  - BONE PAIN [None]
  - PLEURAL EFFUSION [None]
